FAERS Safety Report 13850965 (Version 1)
Quarter: 2017Q3

REPORT INFORMATION
  Report Type: Spontaneous
  Country: US (occurrence: US)
  Receive Date: 20170809
  Receipt Date: 20170809
  Transmission Date: 20171127
  Serious: No
  Sender: FDA-Public Use
  Company Number: US-BAUSCH-BL-2016-017084

PATIENT
  Age: 69 Year
  Sex: Female
  Weight: 72.64 kg

DRUGS (1)
  1. DIHYDROERGOTAMINE MESYLATE. [Suspect]
     Active Substance: DIHYDROERGOTAMINE MESYLATE
     Indication: PRODUCT USED FOR UNKNOWN INDICATION
     Route: 065

REACTIONS (2)
  - Injury [Recovering/Resolving]
  - Product packaging issue [Unknown]

NARRATIVE: CASE EVENT DATE: 20160713
